FAERS Safety Report 6846379-2 (Version None)
Quarter: 2010Q3

REPORT INFORMATION
  Report Type: 
  Country: None (occurrence: None)
  Receive Date: 20100715
  Receipt Date: 20071102
  Transmission Date: 20110219
  Serious: No
  Sender: FDA-Public Use
  Company Number: US-PFIZER INC-2007076925

PATIENT
  Sex: Female
  Weight: 81.8 kg

DRUGS (4)
  1. CHANTIX [Suspect]
     Indication: SMOKING CESSATION THERAPY
     Dates: start: 20070730
  2. ATENOLOL [Concomitant]
     Indication: HYPERTENSION
  3. CYMBALTA [Concomitant]
     Indication: FIBROMYALGIA
  4. DRUG, UNSPECIFIED [Concomitant]
     Indication: FIBROMYALGIA

REACTIONS (2)
  - ABDOMINAL DISCOMFORT [None]
  - STRESS [None]
